FAERS Safety Report 4539269-1 (Version None)
Quarter: 2004Q4

REPORT INFORMATION
  Report Type: 
  Country: None (occurrence: None)
  Receive Date: 20041228
  Receipt Date: 20041217
  Transmission Date: 20050328
  Serious: Yes (Other)
  Sender: FDA-Public Use
  Company Number: US-JNJFOC-20040803399

PATIENT
  Sex: Male
  Weight: 83.92 kg

DRUGS (5)
  1. REMICADE [Suspect]
     Route: 042
     Dates: start: 20020101
  2. REMICADE [Suspect]
     Indication: CROHN'S DISEASE
     Route: 042
     Dates: start: 20020101
  3. WELLBUTRIN [Concomitant]
  4. SINGULAIR [Concomitant]
  5. TYLENOL (CAPLET) [Concomitant]

REACTIONS (1)
  - SYSTEMIC LUPUS ERYTHEMATOSUS [None]
